FAERS Safety Report 24341623 (Version 3)
Quarter: 2025Q2

REPORT INFORMATION
  Report Type: Other
  Country: GB (occurrence: GB)
  Receive Date: 20240920
  Receipt Date: 20250616
  Transmission Date: 20250716
  Serious: Yes (Life-Threatening, Other)
  Sender: GLENMARK
  Company Number: GB-002147023-NVSC2024GB179605

PATIENT
  Sex: Female

DRUGS (13)
  1. OMEPRAZOLE [Suspect]
     Active Substance: OMEPRAZOLE
     Indication: Product used for unknown indication
     Dosage: 20 MILLIGRAM, QD (NOVARTIS SECTOR: PHARMA)
     Route: 065
  2. LETROZOLE [Suspect]
     Active Substance: LETROZOLE
     Indication: Product used for unknown indication
     Dosage: 2.5 MILLIGRAM, QD, NOVARTIS SECTOR: PHARMA
     Route: 065
  3. KISQALI [Suspect]
     Active Substance: RIBOCICLIB SUCCINATE
     Indication: Product used for unknown indication
     Dosage: 600 MILLIGRAM, QD, NOVARTIS SECTOR: PHARMA
     Route: 065
  4. AMITRIPTYLINE [Suspect]
     Active Substance: AMITRIPTYLINE
     Indication: Product used for unknown indication
     Route: 065
  5. VITAMIN D NOS [Suspect]
     Active Substance: CHOLECALCIFEROL\ERGOCALCIFEROL
     Indication: Product used for unknown indication
     Route: 065
  6. CALCIUM [Suspect]
     Active Substance: CALCIUM
     Indication: Product used for unknown indication
     Route: 065
  7. GOSERELIN [Suspect]
     Active Substance: GOSERELIN
     Indication: Product used for unknown indication
     Dosage: 14.4 MILLIGRAM, QW (3.6 MG, 4W) (SUBDERMAL)
     Route: 058
  8. GOSERELIN [Suspect]
     Active Substance: GOSERELIN
     Dosage: 14.4 MILLIGRAM, QW (3.6 MG, 4W) (SUBDERMAL)
     Route: 058
  9. GOSERELIN [Suspect]
     Active Substance: GOSERELIN
     Dosage: 14.4 MILLIGRAM, QW (3.6 MG, 4W) (SUBDERMAL)
     Route: 058
  10. SERTRALINE [Suspect]
     Active Substance: SERTRALINE HYDROCHLORIDE
     Indication: Product used for unknown indication
     Dosage: 50 MILLIGRAM, QD
     Route: 065
  11. DENOSUMAB [Suspect]
     Active Substance: DENOSUMAB
     Indication: Product used for unknown indication
     Dosage: UNK UNK, QW (UNK, 4W)
     Route: 058
  12. DENOSUMAB [Suspect]
     Active Substance: DENOSUMAB
     Dosage: UNK UNK, QW (UNK, 4W)
     Route: 058
  13. PREDNISOLONE [Suspect]
     Active Substance: PREDNISOLONE
     Indication: Product used for unknown indication
     Route: 065

REACTIONS (1)
  - Hepatotoxicity [Unknown]
